FAERS Safety Report 9884179 (Version 1)
Quarter: 2014Q1

REPORT INFORMATION
  Report Type: Report from Study
  Country: LB (occurrence: LB)
  Receive Date: 20140210
  Receipt Date: 20140210
  Transmission Date: 20141002
  Serious: Yes (Hospitalization)
  Sender: FDA-Public Use
  Company Number: LB-SA-2014SA013890

PATIENT
  Age: 62 Year
  Sex: Male

DRUGS (6)
  1. LANTUS SOLOSTAR [Suspect]
     Indication: DIABETES MELLITUS
     Dosage: STARTED FOUR YEARS AGO. DOSE:30 UNIT(S)
     Route: 058
     Dates: start: 2010
  2. DEPAKIN [Concomitant]
     Route: 048
  3. FLUPENTIXOL/MELITRACEN [Concomitant]
     Route: 048
  4. LASIX [Concomitant]
     Route: 048
  5. RAMIPRIL [Concomitant]
     Route: 048
  6. SOLOSTAR [Concomitant]

REACTIONS (1)
  - Acute pulmonary oedema [Unknown]
